FAERS Safety Report 25503127 (Version 2)
Quarter: 2025Q4

REPORT INFORMATION
  Report Type: Spontaneous
  Country: US (occurrence: US)
  Receive Date: 20250702
  Receipt Date: 20251013
  Transmission Date: 20260118
  Serious: No
  Sender: CHIESI
  Company Number: US-CHIESI-2025CHF02490

PATIENT
  Sex: Female
  Weight: 19.499 kg

DRUGS (1)
  1. FILSUVEZ [Suspect]
     Active Substance: BIRCH TRITERPENES
     Indication: Epidermolysis bullosa
     Dosage: UNK, PRN
     Route: 061
     Dates: start: 20250204

REACTIONS (3)
  - Wound [Recovering/Resolving]
  - Blister [Recovering/Resolving]
  - Wound [Recovered/Resolved]

NARRATIVE: CASE EVENT DATE: 20250101
